FAERS Safety Report 18256664 (Version 1)
Quarter: 2020Q3

REPORT INFORMATION
  Report Type: Spontaneous
  Country: US (occurrence: US)
  Receive Date: 20200910
  Receipt Date: 20200910
  Transmission Date: 20201103
  Serious: Yes (Hospitalization)
  Sender: FDA-Public Use
  Company Number: None

PATIENT
  Age: 39 Year
  Sex: Male
  Weight: 87.5 kg

DRUGS (3)
  1. CISPLATIN (119875) [Suspect]
     Active Substance: CISPLATIN
     Dates: end: 20200901
  2. TAXOL [Suspect]
     Active Substance: PACLITAXEL
     Dates: end: 20200828
  3. IFOSFAMIDE. [Suspect]
     Active Substance: IFOSFAMIDE
     Dates: end: 20200901

REACTIONS (4)
  - Discomfort [None]
  - Insomnia [None]
  - Hypophagia [None]
  - Dysphagia [None]

NARRATIVE: CASE EVENT DATE: 20200907
